FAERS Safety Report 11036888 (Version 1)
Quarter: 2015Q2

REPORT INFORMATION
  Report Type: Spontaneous
  Country: US (occurrence: None)
  Receive Date: 20150415
  Receipt Date: 20150415
  Transmission Date: 20150821
  Serious: Yes (Other)
  Sender: FDA-Public Use
  Company Number: None

PATIENT
  Age: 58 Year
  Sex: Male
  Weight: 68.04 kg

DRUGS (4)
  1. CREST PRO-HEALTH ALL-AROUND PROTECTION [Suspect]
     Active Substance: STANNOUS FLUORIDE
     Indication: DENTAL PLAQUE
     Dosage: 1 TABLESPOON
     Route: 048
     Dates: start: 20150307, end: 20150409
  2. OMEPRAZOLE. [Concomitant]
     Active Substance: OMEPRAZOLE
  3. VITAMIN D [Concomitant]
     Active Substance: CHOLECALCIFEROL
  4. PROSTATE HEALTH [Concomitant]

REACTIONS (2)
  - Palpitations [None]
  - Heart rate irregular [None]

NARRATIVE: CASE EVENT DATE: 20150307
